FAERS Safety Report 5181158-6 (Version None)
Quarter: 2006Q4

REPORT INFORMATION
  Report Type: 
  Country: None (occurrence: None)
  Receive Date: 20061220
  Receipt Date: 20061214
  Transmission Date: 20070319
  Serious: Yes (Other)
  Sender: FDA-Public Use
  Company Number: US-BRISTOL-MYERS SQUIBB COMPANY-13613021

PATIENT
  Sex: Female
  Weight: 68 kg

DRUGS (7)
  1. WARFARIN SODIUM [Suspect]
     Indication: HEART RATE IRREGULAR
     Dosage: PRIOR DOSE WARFARIN 5MG X 3DAYS AND 2.5MG X 4DAYS
     Dates: start: 20061208
  2. SYNTHROID [Concomitant]
  3. CADUET [Concomitant]
  4. GLUCOSAMINE SULFATE [Concomitant]
  5. ASPIRIN + CAFFEINE [Concomitant]
  6. SPIRONOLACTONE [Concomitant]
  7. VITAMINS [Concomitant]

REACTIONS (2)
  - CYSTITIS [None]
  - HAEMORRHAGE URINARY TRACT [None]
